FAERS Safety Report 20249648 (Version 1)
Quarter: 2021Q4

REPORT INFORMATION
  Report Type: Spontaneous
  Country: CA (occurrence: CA)
  Receive Date: 20211229
  Receipt Date: 20211229
  Transmission Date: 20220304
  Serious: Yes (Other)
  Sender: FDA-Public Use
  Company Number: CA-GUERBET-CA-20210006

PATIENT
  Age: 14 Year
  Sex: Male

DRUGS (1)
  1. DOTAREM [Suspect]
     Active Substance: GADOTERATE MEGLUMINE
     Indication: Magnetic resonance imaging head
     Route: 042

REACTIONS (7)
  - Hypersensitivity [Unknown]
  - Cough [Unknown]
  - Ear swelling [Unknown]
  - Eyelid oedema [Unknown]
  - Pharyngeal paraesthesia [Unknown]
  - Erythema [Unknown]
  - Rash [Unknown]
